FAERS Safety Report 5404853-X (Version None)
Quarter: 2007Q3

REPORT INFORMATION
  Report Type: 
  Country: None (occurrence: None)
  Receive Date: 20070803
  Receipt Date: 20070726
  Transmission Date: 20080115
  Serious: Yes (Hospitalization, Other)
  Sender: FDA-Public Use
  Company Number: PHEH2007US09434

PATIENT
  Age: 81 Year
  Sex: Female

DRUGS (24)
  1. GLEEVEC [Suspect]
     Indication: CHRONIC MYELOID LEUKAEMIA
     Route: 048
     Dates: start: 20070402, end: 20070624
  2. CODEINE SUL TAB [Concomitant]
     Dates: end: 20070701
  3. MOTRIN [Concomitant]
     Route: 048
     Dates: end: 20070701
  4. SANDOSTATIN [Concomitant]
     Dates: end: 20070701
  5. METOLAZONE [Concomitant]
     Dates: end: 20070701
  6. HALDOL [Concomitant]
     Dosage: 0.5 MG, QHS
     Route: 048
  7. ZAROXOLYN [Concomitant]
     Dosage: 5 MG, QD
     Route: 048
  8. VITAMIN CAP [Concomitant]
     Dosage: UNK, QD
     Route: 048
  9. NEXIUM [Concomitant]
     Dosage: 40 MG, QD
     Route: 048
  10. MICRO-K [Concomitant]
     Dosage: 20 MEQ, BID
     Route: 048
  11. SENOKOT /USA/ [Concomitant]
     Dosage: 2 DF, BID
     Route: 048
  12. PREDNISONE [Concomitant]
     Dosage: 2.5 MG, BID
     Route: 048
  13. COMPAZINE [Concomitant]
     Dosage: 5 MG, Q6H
     Route: 048
  14. COLACE [Concomitant]
     Dosage: 100 MG, BID
     Route: 048
  15. INSULIN [Concomitant]
     Route: 058
  16. PRINIVIL [Concomitant]
     Dosage: 5 MG, QD
     Route: 048
  17. ARICEPT [Concomitant]
     Dosage: 10 MG, QHS
     Route: 048
  18. SYNTHROID [Concomitant]
     Dosage: UNK, QD
     Route: 048
  19. NAMENDA [Concomitant]
     Dosage: 10 MG, BID
     Route: 048
  20. MYCOSTATIN [Concomitant]
     Route: 061
  21. PLAVIX [Concomitant]
     Dosage: 75 MG, QD
     Route: 048
  22. LASIX [Concomitant]
     Dosage: 40 MG, QD
     Route: 048
  23. FOSAMAX ONCE WEEKLY [Concomitant]
     Dosage: 70 MG, QW
     Route: 048
  24. ASPIRIN [Concomitant]
     Dosage: 325 MG, QD
     Route: 048

REACTIONS (15)
  - ANGIOGRAM ABNORMAL [None]
  - CARDIAC DISORDER [None]
  - ERYTHEMA [None]
  - HYPONATRAEMIA [None]
  - HYPOTENSION [None]
  - OEDEMA PERIPHERAL [None]
  - PAIN IN EXTREMITY [None]
  - PERIPHERAL VASCULAR DISORDER [None]
  - PLEURAL DISORDER [None]
  - PULSE ABSENT [None]
  - RENAL ARTERY STENOSIS [None]
  - SKIN LESION [None]
  - SKIN ULCER [None]
  - STENT PLACEMENT [None]
  - VASCULAR OCCLUSION [None]
